FAERS Safety Report 4928580-8 (Version None)
Quarter: 2006Q1

REPORT INFORMATION
  Report Type: 
  Country: None (occurrence: None)
  Receive Date: 20060223
  Receipt Date: 20060131
  Transmission Date: 20060701
  Serious: Yes (Other)
  Sender: FDA-Public Use
  Company Number: US200602000423

PATIENT
  Age: 36 Year
  Sex: Female

DRUGS (7)
  1. CYMBALTA [Suspect]
  2. ULTRAM [Concomitant]
  3. PERCOCET [Concomitant]
  4. ACETAMINOPHEN [Concomitant]
  5. ZANAFLEX [Concomitant]
  6. NAPROXEN [Concomitant]
  7. NEURONTIN [Concomitant]

REACTIONS (3)
  - ACCIDENTAL OVERDOSE [None]
  - ALANINE AMINOTRANSFERASE INCREASED [None]
  - BLOOD BILIRUBIN INCREASED [None]
